FAERS Safety Report 25437752 (Version 3)
Quarter: 2025Q3

REPORT INFORMATION
  Report Type: Report from Study
  Country: EU (occurrence: EU)
  Receive Date: 20250616
  Receipt Date: 20250707
  Transmission Date: 20251020
  Serious: Yes (Other)
  Sender: AMGEN
  Company Number: EU-BEH-2025208540

PATIENT
  Age: 77 Year
  Sex: Female

DRUGS (1)
  1. AVACOPAN [Suspect]
     Active Substance: AVACOPAN
     Indication: Antineutrophil cytoplasmic antibody positive
     Dosage: 30 MG, BID
     Route: 065
     Dates: start: 20240927, end: 20241108

REACTIONS (1)
  - Hepatitis [Recovered/Resolved]

NARRATIVE: CASE EVENT DATE: 20241102
